FAERS Safety Report 14333127 (Version 2)
Quarter: 2018Q1

REPORT INFORMATION
  Report Type: Spontaneous
  Country: FR (occurrence: FR)
  Receive Date: 20171228
  Receipt Date: 20180102
  Transmission Date: 20180509
  Serious: Yes (Death, Other)
  Sender: FDA-Public Use
  Company Number: FR-PFIZER INC-2017547924

PATIENT
  Age: 49 Year
  Sex: Male
  Weight: 52 kg

DRUGS (3)
  1. POLARAMINE [Suspect]
     Active Substance: DEXCHLORPHENIRAMINE MALEATE
     Dosage: UNK
     Route: 042
  2. SOLU-MEDROL [Suspect]
     Active Substance: METHYLPREDNISOLONE SODIUM SUCCINATE
     Indication: ANAPHYLACTIC SHOCK
     Dosage: UNK
     Route: 042
  3. PACLITAXEL. [Suspect]
     Active Substance: PACLITAXEL
     Indication: NEOPLASM MALIGNANT
     Dosage: 12 MG, UNK
     Route: 042
     Dates: start: 20171208

REACTIONS (2)
  - Cardio-respiratory arrest [Fatal]
  - Pruritus [Fatal]

NARRATIVE: CASE EVENT DATE: 20171208
